FAERS Safety Report 6581571-6 (Version None)
Quarter: 2010Q1

REPORT INFORMATION
  Report Type: 
  Country: None (occurrence: None)
  Receive Date: 20100211
  Receipt Date: 20100211
  Transmission Date: 20100710
  Serious: Yes (Other)
  Sender: FDA-Public Use
  Company Number: None

PATIENT
  Age: 60 Year
  Sex: Female
  Weight: 91.173 kg

DRUGS (1)
  1. VENLAFAXINE [Suspect]
     Indication: MAJOR DEPRESSION
     Dosage: 225 QD PO; QDAY
     Route: 048
     Dates: start: 20100115, end: 20100125

REACTIONS (6)
  - DEPRESSED MOOD [None]
  - DRUG EFFECT DECREASED [None]
  - IRRITABILITY [None]
  - MUSCULOSKELETAL STIFFNESS [None]
  - PRODUCT FORMULATION ISSUE [None]
  - TREMOR [None]
